FAERS Safety Report 7052380-9 (Version None)
Quarter: 2010Q4

REPORT INFORMATION
  Report Type: 
  Country: None (occurrence: None)
  Receive Date: 20101019
  Receipt Date: 20101012
  Transmission Date: 20110411
  Serious: Yes (Other)
  Sender: FDA-Public Use
  Company Number: US-US-EMD SERONO, INC.-7021912

PATIENT
  Sex: Female
  Weight: 92 kg

DRUGS (2)
  1. REBIF [Suspect]
     Indication: PRODUCT USED FOR UNKNOWN INDICATION
     Route: 058
     Dates: start: 20070706
  2. ADVIL [Concomitant]
     Indication: PREMEDICATION

REACTIONS (5)
  - BLOOD TRIGLYCERIDES ABNORMAL [None]
  - FEELING ABNORMAL [None]
  - GLUCOSE TOLERANCE IMPAIRED [None]
  - MENTAL IMPAIRMENT [None]
  - WEIGHT DECREASED [None]
